FAERS Safety Report 9894276 (Version 1)
Quarter: 2014Q1

REPORT INFORMATION
  Report Type: Spontaneous
  Country: BR (occurrence: BR)
  Receive Date: 20140213
  Receipt Date: 20140213
  Transmission Date: 20141002
  Serious: Yes (Hospitalization)
  Sender: FDA-Public Use
  Company Number: BR-GLAXOSMITHKLINE-B0823475A

PATIENT
  Age: 67 Year
  Sex: Male
  Weight: 75 kg

DRUGS (8)
  1. SERETIDE [Suspect]
     Indication: PULMONARY FIBROSIS
     Dosage: 1PUFF TWICE PER DAY
     Route: 055
     Dates: start: 20120808
  2. FUROSEMIDE [Concomitant]
  3. GLIBENCLAMIDE [Concomitant]
  4. METFORMIN [Concomitant]
  5. LOSARTAN [Concomitant]
  6. AAS [Concomitant]
  7. PREDNISONE [Concomitant]
     Dosage: 1TAB PER DAY
     Route: 048
     Dates: start: 20120531
  8. PREDNISONE [Concomitant]
     Dosage: .5TAB PER DAY
     Route: 048
     Dates: start: 20120723

REACTIONS (7)
  - Lip dry [Unknown]
  - Adverse event [Unknown]
  - Dyspnoea [Not Recovered/Not Resolved]
  - Fatigue [Not Recovered/Not Resolved]
  - Weight decreased [Not Recovered/Not Resolved]
  - Decreased appetite [Not Recovered/Not Resolved]
  - Product quality issue [Unknown]
